FAERS Safety Report 23103941 (Version 14)
Quarter: 2024Q3

REPORT INFORMATION
  Report Type: Report from Study
  Country: US (occurrence: US)
  Receive Date: 20231025
  Receipt Date: 20240903
  Transmission Date: 20241017
  Serious: Yes (Other)
  Sender: UCB
  Company Number: US-UCBSA-2022062230

PATIENT
  Age: 13 Year
  Sex: Female
  Weight: 44.1 kg

DRUGS (26)
  1. FINTEPLA [Suspect]
     Active Substance: FENFLURAMINE
     Indication: Severe myoclonic epilepsy of infancy
     Dosage: 4.6 MILLILITER, 2X/DAY (BID)
     Route: 048
     Dates: start: 20220930
  2. FINTEPLA [Suspect]
     Active Substance: FENFLURAMINE
     Indication: Partial seizures
     Dosage: 1 ML MORNING, 1ML AFTERNOON AND 2 ML NIGHT
     Route: 048
  3. FINTEPLA [Suspect]
     Active Substance: FENFLURAMINE
     Indication: Off label use
     Dosage: 1 ML QAM, 1ML AFTERNOON AND 2 ML QPM
     Route: 048
  4. FINTEPLA [Suspect]
     Active Substance: FENFLURAMINE
     Dosage: 2 ML QAM, 1 ML IN AFTERNOON, + 2 ML QPM
     Route: 048
  5. FINTEPLA [Suspect]
     Active Substance: FENFLURAMINE
     Dosage: 2 ML QAM, 1 ML IN AFTERNOON, + 2 ML QPM
     Route: 048
  6. FINTEPLA [Suspect]
     Active Substance: FENFLURAMINE
     Dosage: 2 ML AM, 1 ML IN AFTERNOON, + 2 ML EVENING
     Route: 048
  7. FINTEPLA [Suspect]
     Active Substance: FENFLURAMINE
     Dosage: 2 MILLILITER, 3X/DAY (TID)
     Route: 048
  8. FINTEPLA [Suspect]
     Active Substance: FENFLURAMINE
     Dosage: 1.5 ML AM, 2 ML IN AFTERNOON, + 2 ML EVENING
     Route: 048
  9. FINTEPLA [Suspect]
     Active Substance: FENFLURAMINE
     Dosage: 1.5 ML  IN AM. 2 ML IN AFTERNOON, 2 ML PM
     Route: 048
  10. FINTEPLA [Suspect]
     Active Substance: FENFLURAMINE
     Dosage: 1.5 ML IN AM. 2 ML IN AFTERNOON, 2 ML PM/ 3X/DAY (TID)
     Route: 048
     Dates: start: 20220927
  11. FINTEPLA [Suspect]
     Active Substance: FENFLURAMINE
     Dosage: 2.5 MILLILITER, 3X/DAY (TID)
     Route: 048
     Dates: start: 20220929
  12. FINTEPLA [Suspect]
     Active Substance: FENFLURAMINE
     Dosage: 2 MILLILITER, 3X/DAY (TID)
     Route: 048
  13. FINTEPLA [Suspect]
     Active Substance: FENFLURAMINE
     Dosage: 2 ML QAM, 2 ML IN THE AFTERNOON, 2 ML QPM , 3X/DAY (TID)
     Route: 048
  14. FINTEPLA [Suspect]
     Active Substance: FENFLURAMINE
     Dosage: 2ML IN THE MORNING. 2ML IN THE AFTERNOON, AND 2.5ML AT NIGHT
     Route: 048
  15. FINTEPLA [Suspect]
     Active Substance: FENFLURAMINE
     Dosage: 2.5 ML QAM, 2 ML IN THE AFTERNOON, + 2.5 ML QPM
     Route: 048
  16. FINTEPLA [Suspect]
     Active Substance: FENFLURAMINE
     Dosage: 2.5 ML QAM (MORNING), 2 ML (AFTERNOON), 2.5 ML QHS (AT BEDTIME)
     Route: 048
  17. FINTEPLA [Suspect]
     Active Substance: FENFLURAMINE
     Dosage: 2.5 ML QAM, 2 ML AFTERNOON + 2.5 ML AT NIGHT, FREQUENCY AS 3X/DAY (TID) AND DAILY DOSAGE WITH UNITS
     Route: 048
  18. FINTEPLA [Suspect]
     Active Substance: FENFLURAMINE
     Dosage: 3 MILLILITER, 3X/DAY (TID)
     Route: 048
  19. FINTEPLA [Suspect]
     Active Substance: FENFLURAMINE
     Dosage: 3 MILLILITER, 2X/DAY (BID)
     Route: 048
  20. FINTEPLA [Suspect]
     Active Substance: FENFLURAMINE
     Dosage: 3.4 MILLILITER, 3X/DAY (TID)
     Route: 048
  21. FINTEPLA [Suspect]
     Active Substance: FENFLURAMINE
     Dosage: 3.9 MILLILITER, 3X/DAY (TID)
     Route: 048
  22. FINTEPLA [Suspect]
     Active Substance: FENFLURAMINE
     Dosage: 3.9 MILLILITER, 3X/DAY (TID)
     Route: 048
  23. BANZEL [Concomitant]
     Active Substance: RUFINAMIDE
     Indication: Epilepsy
     Dosage: 1200-2000MG, 2X/DAY (BID)
     Route: 048
  24. CLONAZEPAM [Concomitant]
     Active Substance: CLONAZEPAM
     Indication: Epilepsy
     Dosage: 1.5 MILLIGRAM, 2X/DAY (BID)
     Route: 048
  25. EPIDIOLEX [Concomitant]
     Active Substance: CANNABIDIOL
     Indication: Epilepsy
     Dosage: 420 MILLIGRAM, 2X/DAY (BID)
     Route: 048
  26. VALPROIC ACID [Concomitant]
     Active Substance: VALPROIC ACID
     Indication: Epilepsy
     Dosage: 250-750 MG, 2X/DAY (BID)
     Route: 048

REACTIONS (19)
  - Seizure [Recovering/Resolving]
  - Muscular weakness [Not Recovered/Not Resolved]
  - Fatigue [Unknown]
  - Influenza [Recovered/Resolved]
  - Drooling [Recovering/Resolving]
  - Gait disturbance [Recovering/Resolving]
  - Contusion [Not Recovered/Not Resolved]
  - Decreased appetite [Not Recovered/Not Resolved]
  - Asthenia [Not Recovered/Not Resolved]
  - Sedation [Recovered/Resolved]
  - Speech disorder [Not Recovered/Not Resolved]
  - Anger [Not Recovered/Not Resolved]
  - Aggression [Not Recovered/Not Resolved]
  - Lethargy [Not Recovered/Not Resolved]
  - Somnolence [Not Recovered/Not Resolved]
  - Limb discomfort [Not Recovered/Not Resolved]
  - Illness [Unknown]
  - Off label use [Unknown]
  - Drug ineffective [Unknown]

NARRATIVE: CASE EVENT DATE: 20221005
